FAERS Safety Report 9729531 (Version 2)
Quarter: 2013Q4

REPORT INFORMATION
  Report Type: Spontaneous
  Country: US (occurrence: US)
  Receive Date: 20131204
  Receipt Date: 20131204
  Transmission Date: 20140711
  Serious: No
  Sender: FDA-Public Use
  Company Number: US-GILEAD-2009-0021397

PATIENT
  Sex: Male
  Weight: 122.47 kg

DRUGS (14)
  1. LETAIRIS [Suspect]
     Indication: PULMONARY ARTERIAL HYPERTENSION
     Route: 048
     Dates: start: 20090221
  2. ADVAIR [Concomitant]
  3. ALBUTEROL [Concomitant]
  4. SPIRIVA [Concomitant]
  5. METOPROLOL [Concomitant]
  6. TORSEMIDE [Concomitant]
  7. LISINOPRIL [Concomitant]
  8. HYDROCHLOROTHIAZIDE [Concomitant]
  9. TERAZOSIN [Concomitant]
  10. PLAVIX [Concomitant]
  11. XANAX [Concomitant]
  12. OMEPRAZOLE [Concomitant]
  13. ACETAMINOPHEN [Concomitant]
  14. ASPIRIN [Concomitant]

REACTIONS (3)
  - Depression [Unknown]
  - Nasal congestion [Unknown]
  - Oedema peripheral [Unknown]
